FAERS Safety Report 9265890 (Version 2)
Quarter: 2013Q3

REPORT INFORMATION
  Report Type: Spontaneous
  Country: JP (occurrence: JP)
  Receive Date: 20130501
  Receipt Date: 20130725
  Transmission Date: 20140515
  Serious: Yes (Other)
  Sender: FDA-Public Use
  Company Number: JP-SANOFI-AVENTIS-2013SA042878

PATIENT
  Age: 76 Year
  Sex: Male
  Weight: 65 kg

DRUGS (8)
  1. PLAVIX [Suspect]
     Indication: CEREBRAL INFARCTION
     Route: 048
     Dates: start: 20130116, end: 20130201
  2. PLETAAL [Suspect]
     Indication: CEREBRAL INFARCTION
     Route: 048
     Dates: start: 20130116, end: 20130201
  3. LASIX [Concomitant]
     Route: 048
  4. PRAZAXA [Concomitant]
     Route: 048
     Dates: start: 20130108
  5. ALOSENN [Concomitant]
     Route: 048
  6. ALDACTONE-A [Concomitant]
     Route: 048
  7. LIVALO [Concomitant]
     Route: 048
     Dates: start: 20130108
  8. PURSENNID [Concomitant]
     Route: 048

REACTIONS (2)
  - Tubulointerstitial nephritis [Recovering/Resolving]
  - Drug-induced liver injury [Recovering/Resolving]
